FAERS Safety Report 16049713 (Version 1)
Quarter: 2019Q1

REPORT INFORMATION
  Report Type: Spontaneous
  Country: JP (occurrence: JP)
  Receive Date: 20190307
  Receipt Date: 20190307
  Transmission Date: 20190418
  Serious: Yes (Other)
  Sender: FDA-Public Use
  Company Number: JP-LUNDBECK-DKLU2061131

PATIENT
  Age: 8 Decade
  Sex: Female

DRUGS (2)
  1. DOPS [Suspect]
     Active Substance: DROXIDOPA
     Indication: HAEMODIALYSIS
  2. DOPS [Suspect]
     Active Substance: DROXIDOPA
     Indication: ORTHOSTATIC HYPOTENSION
     Route: 048

REACTIONS (2)
  - Arrhythmia [Unknown]
  - Procedural hypotension [Not Recovered/Not Resolved]
